FAERS Safety Report 4684253-0 (Version None)
Quarter: 2005Q2

REPORT INFORMATION
  Report Type: 
  Country: None (occurrence: None)
  Receive Date: 20050531
  Receipt Date: 20050225
  Transmission Date: 20051028
  Serious: Yes (Hospitalization)
  Sender: FDA-Public Use
  Company Number: 200511551US

PATIENT
  Sex: Female

DRUGS (2)
  1. LOVENOX [Suspect]
  2. HEPARIN [Concomitant]

REACTIONS (1)
  - DEEP VEIN THROMBOSIS [None]
